FAERS Safety Report 9901897 (Version 2)
Quarter: 2014Q1

REPORT INFORMATION
  Report Type: Spontaneous
  Country: RU (occurrence: RU)
  Receive Date: 20140217
  Receipt Date: 20140312
  Transmission Date: 20141002
  Serious: Yes (Hospitalization)
  Sender: FDA-Public Use
  Company Number: RU-VIIV HEALTHCARE LIMITED-B0968958A

PATIENT
  Sex: Female

DRUGS (5)
  1. COMBIVIR [Suspect]
     Indication: HIV INFECTION
     Route: 065
     Dates: start: 2013
  2. KALETRA [Suspect]
     Indication: HIV INFECTION
     Route: 065
     Dates: start: 2013
  3. BISEPTOL [Concomitant]
     Indication: PNEUMONIA
     Route: 048
     Dates: start: 2013
  4. CEFTRIAXONE [Concomitant]
     Indication: PNEUMONIA
     Dates: start: 2013
  5. AMIKACIN [Concomitant]
     Indication: PNEUMONIA BACTERIAL

REACTIONS (7)
  - Pneumonia bacterial [Unknown]
  - Dyspnoea [Recovered/Resolved]
  - Tonsillitis [Not Recovered/Not Resolved]
  - Chills [Not Recovered/Not Resolved]
  - Pyrexia [Recovered/Resolved]
  - Hyperhidrosis [Not Recovered/Not Resolved]
  - Cough [Not Recovered/Not Resolved]
